FAERS Safety Report 13092800 (Version 1)
Quarter: 2017Q1

REPORT INFORMATION
  Report Type: Spontaneous
  Country: US (occurrence: US)
  Receive Date: 20170106
  Receipt Date: 20170106
  Transmission Date: 20170428
  Serious: No
  Sender: FDA-Public Use
  Company Number: US-JNJFOC-20161221675

PATIENT
  Age: 71 Year
  Sex: Female
  Weight: 113.4 kg

DRUGS (6)
  1. TYLENOL EXTRA STRENGTH [Suspect]
     Active Substance: ACETAMINOPHEN
     Indication: BACK PAIN
     Dosage: ALTERNATE 1 TABLET AND 1 ACETYLSALICYLIC ACID EVERY 3-5 HOURS
     Route: 048
  2. BAYER ASPIRIN [Concomitant]
     Active Substance: ASPIRIN
     Indication: ARTHRALGIA
     Dosage: ALTERNATE 1 PARACETAMOL TABLET AND 1 ACETYLSALICYLIC ACID EVERY 3-5 HOURS
     Route: 065
  3. TYLENOL EXTRA STRENGTH [Suspect]
     Active Substance: ACETAMINOPHEN
     Indication: ARTHRALGIA
     Dosage: ALTERNATE 1 TABLET AND 1 ACETYLSALICYLIC ACID EVERY 3-5 HOURS
     Route: 048
  4. BAYER ASPIRIN [Concomitant]
     Active Substance: ASPIRIN
     Indication: ARTHRALGIA
     Dosage: ALTERNATE 1 PARACETAMOL TABLET AND 1 ACETYLSALICYLIC ACID EVERY 3-5 HOURS
     Route: 065
  5. TYLENOL EXTRA STRENGTH [Suspect]
     Active Substance: ACETAMINOPHEN
     Indication: ARTHRALGIA
     Dosage: ALTERNATE 1 TABLET AND 1 ACETYLSALICYLIC ACID EVERY 3-5 HOURS
     Route: 048
  6. BAYER ASPIRIN [Concomitant]
     Active Substance: ASPIRIN
     Indication: BACK PAIN
     Dosage: ALTERNATE 1 PARACETAMOL TABLET AND 1 ACETYLSALICYLIC ACID EVERY 3-5 HOURS
     Route: 065

REACTIONS (3)
  - Inappropriate schedule of drug administration [Unknown]
  - Intentional product use issue [Unknown]
  - Incorrect dose administered [Unknown]
